FAERS Safety Report 6344381-0 (Version None)
Quarter: 2009Q3

REPORT INFORMATION
  Report Type: 
  Country: None (occurrence: None)
  Receive Date: 20090908
  Receipt Date: 20090825
  Transmission Date: 20100115
  Serious: Yes (Other)
  Sender: FDA-Public Use
  Company Number: CZ-PFIZER INC-2009261573

PATIENT
  Age: 35 Year

DRUGS (2)
  1. DOSTINEX [Suspect]
     Indication: HYPERPROLACTINAEMIA
     Route: 048
  2. KLACID [Suspect]

REACTIONS (2)
  - HYPERSENSITIVITY [None]
  - VIRAL INFECTION [None]
